FAERS Safety Report 18542999 (Version 1)
Quarter: 2020Q4

REPORT INFORMATION
  Report Type: Spontaneous
  Country: US (occurrence: US)
  Receive Date: 20201124
  Receipt Date: 20201124
  Transmission Date: 20210114
  Serious: Yes (Hospitalization, Other)
  Sender: FDA-Public Use
  Company Number: US-009507513-2011USA010925

PATIENT
  Age: 54 Year
  Sex: Female
  Weight: 56.7 kg

DRUGS (13)
  1. PRINIVIL [Suspect]
     Active Substance: LISINOPRIL
     Indication: CARDIAC DISORDER
     Dosage: 2.5 MILLIGRAM, QD
     Route: 048
     Dates: start: 2014
  2. CARVEDILOL. [Concomitant]
     Active Substance: CARVEDILOL
     Indication: CARDIAC DISORDER
     Route: 048
     Dates: start: 200610
  3. PROBIOTICS (UNSPECIFIED) [Concomitant]
     Active Substance: PROBIOTICS NOS
     Indication: IMMUNE SYSTEM DISORDER
     Dosage: THREE TIMES A DAY
     Route: 048
     Dates: start: 20150810
  4. LYRICA [Concomitant]
     Active Substance: PREGABALIN
  5. NEXIUM [Suspect]
     Active Substance: ESOMEPRAZOLE MAGNESIUM
     Indication: SCLERODERMA
     Dosage: 80 MILLIGRAM, BID
     Dates: start: 2001
  6. CLONAPINE [Concomitant]
     Active Substance: CLONAZEPAM
  7. PROTONIX [Suspect]
     Active Substance: PANTOPRAZOLE SODIUM
     Dosage: UNK
     Route: 065
  8. TRAMADOL HYDROCHLORIDE. [Concomitant]
     Active Substance: TRAMADOL HYDROCHLORIDE
     Indication: BURSITIS
     Route: 048
     Dates: start: 2015
  9. NEXIUM [Suspect]
     Active Substance: ESOMEPRAZOLE MAGNESIUM
     Indication: IMPAIRED GASTRIC EMPTYING
     Dosage: UNK
     Route: 048
  10. IRON (UNSPECIFIED) [Concomitant]
     Active Substance: IRON
     Route: 048
     Dates: start: 20150810
  11. NEXIUM [Suspect]
     Active Substance: ESOMEPRAZOLE MAGNESIUM
     Indication: BARRETT^S OESOPHAGUS
     Dosage: 160 MILLIGRAM, QD
     Route: 048
     Dates: start: 2001
  12. GABAPENTIN. [Concomitant]
     Active Substance: GABAPENTIN
     Indication: PANIC ATTACK
     Route: 048
     Dates: start: 201501
  13. FLAGYL (METRONIDAZOLE BENZOATE) [Concomitant]
     Active Substance: METRONIDAZOLE BENZOATE
     Route: 041
     Dates: start: 20150809, end: 20150814

REACTIONS (26)
  - Pneumonia [Unknown]
  - Oesophageal discomfort [Unknown]
  - Mouth haemorrhage [Unknown]
  - Dysphagia [Unknown]
  - Choking [Unknown]
  - Burning sensation [Unknown]
  - Vomiting [Unknown]
  - Pseudomonas infection [Unknown]
  - Anaemia [Unknown]
  - Rectal haemorrhage [Unknown]
  - Haematemesis [Unknown]
  - Impaired gastric emptying [Unknown]
  - Oesophageal ulcer [Unknown]
  - Hernia [Unknown]
  - Off label use [Unknown]
  - Myocardial infarction [Unknown]
  - Ulcer [Unknown]
  - Dyspepsia [Unknown]
  - Pain [Unknown]
  - Oesophagitis [Unknown]
  - Dyspepsia [Unknown]
  - Oesophageal pain [Unknown]
  - Asthenia [Unknown]
  - Product dose omission issue [Unknown]
  - Off label use [Unknown]
  - Product use in unapproved indication [Unknown]

NARRATIVE: CASE EVENT DATE: 2001
